FAERS Safety Report 9633311 (Version 2)
Quarter: 2013Q4

REPORT INFORMATION
  Report Type: Spontaneous
  Country: US (occurrence: US)
  Receive Date: 20131021
  Receipt Date: 20131111
  Transmission Date: 20140711
  Serious: Yes (Congenital Anomaly, Other)
  Sender: FDA-Public Use
  Company Number: US-PFIZER INC-2013298698

PATIENT
  Sex: Female

DRUGS (6)
  1. ZOLOFT [Suspect]
     Dosage: UNK
     Route: 064
     Dates: start: 20050323
  2. SERTRALINE HCL [Suspect]
     Dosage: UNK
     Route: 064
     Dates: start: 20050323
  3. AMOXICILLIN [Concomitant]
     Dosage: UNK
     Route: 064
  4. PRIMACARE [Concomitant]
     Dosage: UNK
     Route: 064
  5. FERREX [Concomitant]
     Dosage: UNK
     Route: 064
  6. OPTINATE COMBI [Concomitant]
     Dosage: UNK
     Route: 062

REACTIONS (3)
  - Maternal exposure during pregnancy [Unknown]
  - Talipes [Unknown]
  - Speech disorder [Not Recovered/Not Resolved]
